FAERS Safety Report 16596127 (Version 1)
Quarter: 2019Q3

REPORT INFORMATION
  Report Type: Spontaneous
  Country: FR (occurrence: FR)
  Receive Date: 20190719
  Receipt Date: 20190719
  Transmission Date: 20191004
  Serious: Yes (Hospitalization, Other)
  Sender: FDA-Public Use
  Company Number: FR-BRISTOL-MYERS SQUIBB COMPANY-BMS-2019-069060

PATIENT
  Age: 81 Year
  Sex: Male
  Weight: 85 kg

DRUGS (8)
  1. ZOPICLONE [Concomitant]
     Active Substance: ZOPICLONE
     Indication: INSOMNIA
     Dosage: 7.5 MILLIGRAM, QD 0-0-0-1
     Route: 048
     Dates: start: 201710
  2. LEVOTHYROXINE SODIQUE [Concomitant]
     Active Substance: LEVOTHYROXINE SODIUM
     Indication: HYPOTHYROIDISM
     Dosage: 125 MICROGRAM, QD
     Route: 048
     Dates: start: 201710
  3. OMEPRAZOLE MYLAN [OMEPRAZOLE] [Concomitant]
     Indication: GASTROOESOPHAGEAL REFLUX DISEASE
     Dosage: 10 MILLIGRAM, QD 0-0-1
     Route: 048
     Dates: start: 201710
  4. NEORECORMON [Concomitant]
     Active Substance: ERYTHROPOIETIN
     Indication: ANAEMIA
     Dosage: 3 DOSAGE FORM, QWK
     Route: 058
     Dates: start: 201710
  5. LERCANIDIPINE [Concomitant]
     Active Substance: LERCANIDIPINE
     Indication: HYPERTENSION
     Dosage: 10 MILLIGRAM, QD 1-0-0
     Route: 048
     Dates: start: 201710
  6. BISOPROLOL MYLAN [Concomitant]
     Active Substance: BISOPROLOL
     Indication: HYPERTENSION
     Dosage: 5 MILLIGRAM, QD 1-0-0
     Route: 048
     Dates: start: 201710
  7. OPDIVO [Suspect]
     Active Substance: NIVOLUMAB
     Indication: LUNG NEOPLASM MALIGNANT
     Dosage: 3 MILLIGRAM/KILOGRAM, QCYCLE
     Route: 042
     Dates: start: 20181105, end: 20190312
  8. FUROSEMIDE [FUROSEMIDE SODIUM] [Concomitant]
     Indication: HYPERTENSION
     Dosage: 160 MILLIGRAM, QD 2-2-0
     Route: 048
     Dates: start: 201710

REACTIONS (1)
  - Myocardial infarction [Not Recovered/Not Resolved]

NARRATIVE: CASE EVENT DATE: 20190327
